FAERS Safety Report 6721452-8 (Version None)
Quarter: 2010Q2

REPORT INFORMATION
  Report Type: 
  Country: None (occurrence: None)
  Receive Date: 20100426
  Receipt Date: 20091229
  Transmission Date: 20101027
  Serious: Yes (Hospitalization)
  Sender: FDA-Public Use
  Company Number: 2009BI037566

PATIENT
  Age: 49 Year
  Sex: Male

DRUGS (3)
  1. TYSABRI [Suspect]
     Indication: MULTIPLE SCLEROSIS
     Dosage: 300 MG;QM;IV
     Route: 042
     Dates: start: 20080104
  2. AVONEX [Concomitant]
  3. AVONEX [Concomitant]

REACTIONS (4)
  - BALANCE DISORDER [None]
  - CATARACT [None]
  - FATIGUE [None]
  - PYREXIA [None]
